FAERS Safety Report 5289374-X (Version None)
Quarter: 2007Q2

REPORT INFORMATION
  Report Type: 
  Country: None (occurrence: None)
  Receive Date: 20070406
  Receipt Date: 20070403
  Transmission Date: 20071010
  Serious: Yes (Hospitalization)
  Sender: FDA-Public Use
  Company Number: FR-BRISTOL-MYERS SQUIBB COMPANY-13738281

PATIENT
  Age: 74 Year
  Sex: Female

DRUGS (6)
  1. APROVEL TABS [Suspect]
     Route: 048
     Dates: start: 20060310
  2. PRAXILENE [Suspect]
  3. ADANCOR [Suspect]
     Dates: start: 20060310
  4. FENOFIBRATE [Suspect]
     Dates: start: 20060310
  5. KARDEGIC [Concomitant]
     Dates: start: 20060301
  6. ISOPTIN [Concomitant]
     Dates: start: 20060301

REACTIONS (2)
  - DIARRHOEA [None]
  - WEIGHT DECREASED [None]
